FAERS Safety Report 4648518-0 (Version None)
Quarter: 2005Q2

REPORT INFORMATION
  Report Type: 
  Country: None (occurrence: None)
  Receive Date: 20050429
  Receipt Date: 20050413
  Transmission Date: 20051028
  Serious: Yes (Death, Hospitalization, Other)
  Sender: FDA-Public Use
  Company Number: US-BRISTOL-MYERS SQUIBB COMPANY-12933024

PATIENT
  Age: 69 Year
  Sex: Male

DRUGS (20)
  1. CETUXIMAB [Suspect]
     Indication: COLORECTAL CANCER
     Dosage: TEMPORARILY STOPPED. THERAPY START DATE 28-FEB-05.
     Route: 042
     Dates: start: 20050406, end: 20050406
  2. OXALIPLATIN [Suspect]
     Indication: COLORECTAL CANCER
     Dosage: TEMPORARILY STOPPED. THERAPY START DATE 28-FEB-2005.
     Route: 042
     Dates: start: 20050406, end: 20050406
  3. FLUOROURACIL [Suspect]
     Indication: COLORECTAL CANCER
     Dosage: TEMPORARILY STOPPED.DOSING:400 MG/M2IVP FOLLOWED BY 2500 MG/M2 CIV INFUSION. START DATE 28-FEB-05.
     Route: 042
     Dates: start: 20050406, end: 20050406
  4. LEUCOVORIN [Suspect]
     Indication: COLORECTAL CANCER
     Dosage: TEMPORARILY STOPPED. THERAPY START DATE 28-FEB-05.
     Route: 042
     Dates: start: 20050406, end: 20050406
  5. PROTONIX [Concomitant]
     Indication: GASTROOESOPHAGEAL REFLUX DISEASE
     Route: 048
     Dates: start: 20050127, end: 20050415
  6. VICODIN ES [Concomitant]
     Indication: PAIN
     Route: 048
     Dates: start: 20050127, end: 20050415
  7. DECADRON [Concomitant]
     Indication: ANTIEMETIC SUPPORTIVE CARE
     Route: 042
     Dates: start: 20050302, end: 20050415
  8. DIPHENHYDRAMINE HCL [Concomitant]
     Indication: PREMEDICATION
     Route: 042
     Dates: start: 20050302, end: 20050415
  9. DIPHENHYDRAMINE HCL [Concomitant]
     Route: 048
     Dates: start: 20050302, end: 20050415
  10. ZOMETA [Concomitant]
     Indication: BONE DISORDER
     Route: 042
     Dates: start: 20050302, end: 20050415
  11. ARANESP [Concomitant]
     Indication: ANAEMIA
     Route: 058
     Dates: start: 20050302, end: 20050415
  12. ALOXI [Concomitant]
     Indication: ANTIEMETIC SUPPORTIVE CARE
     Route: 042
     Dates: start: 20050302, end: 20050415
  13. PROCRIT [Concomitant]
     Route: 058
     Dates: start: 20050321, end: 20050415
  14. PREVACID [Concomitant]
     Indication: GASTROOESOPHAGEAL REFLUX DISEASE
     Route: 048
     Dates: start: 20050225, end: 20050415
  15. ZOFRAN [Concomitant]
     Indication: ANTIEMETIC SUPPORTIVE CARE
     Dates: start: 20050302, end: 20050415
  16. MEGACE [Concomitant]
     Indication: NEOPLASM
     Dates: start: 20050302, end: 20050415
  17. CALCIUM GLUCONATE [Concomitant]
     Indication: MINERAL SUPPLEMENTATION
     Dates: start: 20050302, end: 20050415
  18. MAGNESIUM [Concomitant]
     Indication: MINERAL SUPPLEMENTATION
     Route: 048
     Dates: start: 20050302, end: 20050415
  19. PHENERGAN [Concomitant]
  20. PERCOCET [Concomitant]

REACTIONS (8)
  - ABDOMINAL PAIN [None]
  - COLORECTAL CANCER METASTATIC [None]
  - DEHYDRATION [None]
  - HAEMOPTYSIS [None]
  - NAUSEA [None]
  - PANCYTOPENIA [None]
  - RESPIRATORY FAILURE [None]
  - VOMITING [None]
